FAERS Safety Report 6516329-7 (Version None)
Quarter: 2009Q4

REPORT INFORMATION
  Report Type: 
  Country: None (occurrence: None)
  Receive Date: 20091216
  Receipt Date: 20090630
  Transmission Date: 20100525
  Serious: Yes (Other)
  Sender: FDA-Public Use
  Company Number: 2009NI0140FU1

PATIENT
  Age: 74 Year
  Sex: Female
  Weight: 52.1637 kg

DRUGS (5)
  1. NITROLINGUAL PUMPSPRAY [Suspect]
     Indication: GASTROOESOPHAGEAL REFLUX DISEASE
     Dosage: 2 SPRAYS, AS NEEDED
     Dates: start: 20081101
  2. SYNTHROID [Concomitant]
  3. CARAFATE [Concomitant]
  4. PHENERGAN HCL [Concomitant]
  5. PEPCID AC [Concomitant]

REACTIONS (2)
  - DRUG INEFFECTIVE [None]
  - OFF LABEL USE [None]
